FAERS Safety Report 22146487 (Version 1)
Quarter: 2023Q1

REPORT INFORMATION
  Report Type: Spontaneous
  Country: US (occurrence: None)
  Receive Date: 20230327
  Receipt Date: 20230327
  Transmission Date: 20230418
  Serious: No
  Sender: FDA-Public Use
  Company Number: None

PATIENT
  Sex: Female

DRUGS (1)
  1. EPCLUSA [Suspect]
     Active Substance: SOFOSBUVIR\VELPATASVIR
     Dosage: OTHER QUANTITY : 400-100MG;?FREQUENCY : DAILY;?
     Route: 048

REACTIONS (7)
  - Tremor [None]
  - Memory impairment [None]
  - Dizziness [None]
  - Alopecia [None]
  - Respiration abnormal [None]
  - Condition aggravated [None]
  - Refusal of treatment by patient [None]
